FAERS Safety Report 8899716 (Version 3)
Quarter: 2013Q4

REPORT INFORMATION
  Report Type: Spontaneous
  Country: US (occurrence: US)
  Receive Date: 20121109
  Receipt Date: 20131121
  Transmission Date: 20140711
  Serious: Yes (Other)
  Sender: FDA-Public Use
  Company Number: US-BAYER-2012-116012

PATIENT
  Age: 32 Year
  Sex: Female
  Weight: 105.22 kg

DRUGS (1)
  1. MIRENA [Suspect]
     Indication: CONTRACEPTION
     Dosage: 20 MCG/24HR, CONT
     Route: 015
     Dates: start: 20100107, end: 20101228

REACTIONS (11)
  - Uterine perforation [None]
  - Procedural haemorrhage [None]
  - Medical device discomfort [None]
  - Abdominal pain lower [None]
  - Haematuria [None]
  - Ovarian cyst [None]
  - Device difficult to use [None]
  - Injury [None]
  - Pain [None]
  - Anxiety [None]
  - Stress [None]
